FAERS Safety Report 4878090-1 (Version None)
Quarter: 2006Q1

REPORT INFORMATION
  Report Type: 
  Country: None (occurrence: None)
  Receive Date: 20060110
  Receipt Date: 20051229
  Transmission Date: 20060701
  Serious: Yes (Other)
  Sender: FDA-Public Use
  Company Number: 2006000499

PATIENT
  Age: 83 Year
  Sex: Male
  Weight: 83.9154 kg

DRUGS (3)
  1. LIPITOR [Suspect]
     Indication: BLOOD CHOLESTEROL INCREASED
     Dosage: 10 MG (10 MG, 1 IN 1 D), ORAL
     Route: 048
     Dates: start: 19970101
  2. ASPIRIN [Concomitant]
  3. WARFARIN SODIUM [Concomitant]

REACTIONS (2)
  - AORTIC VALVE REPLACEMENT [None]
  - FLATULENCE [None]
